FAERS Safety Report 4395866-8 (Version None)
Quarter: 2004Q3

REPORT INFORMATION
  Report Type: 
  Country: None (occurrence: None)
  Receive Date: 20040709
  Receipt Date: 20040616
  Transmission Date: 20050211
  Serious: Yes (Other)
  Sender: FDA-Public Use
  Company Number: US-JNJFOC-20040605119

PATIENT
  Sex: Male

DRUGS (5)
  1. REMICADE [Suspect]
     Indication: CROHN'S DISEASE
  2. FLAGYL [Concomitant]
  3. IMMODIUM (LOPERAMIDE HYDROCHLORIDE) [Concomitant]
  4. XANAX [Concomitant]
  5. INDERAL [Concomitant]

REACTIONS (1)
  - MALIGNANT MELANOMA [None]
